FAERS Safety Report 9507123 (Version 1)
Quarter: 2013Q3

REPORT INFORMATION
  Report Type: Spontaneous
  Country: DE (occurrence: None)
  Receive Date: 20130904
  Receipt Date: 20130904
  Transmission Date: 20140515
  Serious: Yes (Hospitalization)
  Sender: FDA-Public Use
  Company Number: GB-DEXPHARM-20130534

PATIENT
  Age: 74 Year
  Sex: Female

DRUGS (1)
  1. OMEPRAZOLE [Suspect]
     Indication: COLITIS
     Dosage: 20 MG, 1 IN 1 D, ORAL?100.0 MG
     Route: 048
     Dates: start: 20130720, end: 20130730

REACTIONS (8)
  - Erythema [None]
  - Rash generalised [None]
  - Dysphagia [None]
  - Rash macular [None]
  - Rash pruritic [None]
  - Rash pustular [None]
  - Skin tightness [None]
  - Skin exfoliation [None]
